FAERS Safety Report 14461785 (Version 1)
Quarter: 2018Q1

REPORT INFORMATION
  Report Type: Other
  Country: US (occurrence: US)
  Receive Date: 20180130
  Receipt Date: 20180130
  Transmission Date: 20180509
  Serious: No
  Sender: FDA-Public Use
  Company Number: US-ACORDA-ACO_143756_2017

PATIENT
  Age: 54 Year
  Sex: Female
  Weight: 90.25 kg

DRUGS (4)
  1. AMPYRA [Suspect]
     Active Substance: DALFAMPRIDINE
     Indication: MULTIPLE SCLEROSIS
     Dosage: 10 MG, BID
     Route: 048
     Dates: start: 201608
  2. AMPYRA [Suspect]
     Active Substance: DALFAMPRIDINE
     Indication: GAIT DISTURBANCE
     Dosage: 10 MG, QD
     Route: 048
     Dates: start: 201709
  3. RITUXAN [Concomitant]
     Active Substance: RITUXIMAB
     Dosage: UNK
     Dates: start: 2013
  4. CLONAZEPAM. [Concomitant]
     Active Substance: CLONAZEPAM
     Dosage: UNK
     Dates: start: 2013

REACTIONS (14)
  - Dysstasia [Unknown]
  - Incorrect dose administered [Not Recovered/Not Resolved]
  - Fall [Unknown]
  - Neuralgia [Unknown]
  - Therapy cessation [Recovered/Resolved]
  - Peroneal nerve palsy [Unknown]
  - Multiple sclerosis [Unknown]
  - Loss of personal independence in daily activities [Unknown]
  - Drug ineffective [Unknown]
  - Meniscus injury [Unknown]
  - Condition aggravated [Not Recovered/Not Resolved]
  - Fine motor skill dysfunction [Unknown]
  - Muscle spasms [Unknown]
  - Gait disturbance [Unknown]

NARRATIVE: CASE EVENT DATE: 201703
